FAERS Safety Report 9506503 (Version 1)
Quarter: 2013Q3

REPORT INFORMATION
  Report Type: Spontaneous
  Country: US (occurrence: None)
  Receive Date: 20130905
  Receipt Date: 20130905
  Transmission Date: 20140515
  Serious: Yes (Hospitalization)
  Sender: FDA-Public Use
  Company Number: None

PATIENT
  Age: 83 Year
  Sex: Female
  Weight: 35.38 kg

DRUGS (12)
  1. WARFARIN [Suspect]
     Indication: ATRIAL FIBRILLATION
     Dosage: 2.5 MG ALT WITH 5 MG QD ORAL
     Route: 048
  2. AMLODIPINE [Concomitant]
  3. ASPIRIN [Concomitant]
  4. BRIMONIDINE/TIMOLOL [Concomitant]
  5. CHOLESTYRAMINE [Concomitant]
  6. DIGOXIN [Concomitant]
  7. LISINOPRIL [Concomitant]
  8. METOPROLOL [Concomitant]
  9. MUTLIVITAMIN [Concomitant]
  10. OMEPRAZOLE [Concomitant]
  11. SEVELAMER [Concomitant]
  12. ZOLPIDEM [Concomitant]

REACTIONS (7)
  - Melaena [None]
  - Dyspnoea [None]
  - Atrial fibrillation [None]
  - Thrombosis [None]
  - Gastrointestinal haemorrhage [None]
  - International normalised ratio increased [None]
  - Gastritis [None]
